FAERS Safety Report 10301391 (Version 1)
Quarter: 2014Q3

REPORT INFORMATION
  Report Type: Spontaneous
  Country: US (occurrence: None)
  Receive Date: 20140710
  Receipt Date: 20140710
  Transmission Date: 20150326
  Serious: No
  Sender: FDA-Public Use
  Company Number: None

PATIENT
  Age: 59 Year
  Sex: Male

DRUGS (1)
  1. NEXAVAR [Suspect]
     Active Substance: SORAFENIB
     Indication: HEPATIC CANCER
     Dosage: 2 TABLETS BID ORAL
     Route: 048

REACTIONS (3)
  - Dyspepsia [None]
  - Rectal haemorrhage [None]
  - Decreased appetite [None]

NARRATIVE: CASE EVENT DATE: 20140616
